FAERS Safety Report 18371958 (Version 1)
Quarter: 2020Q4

REPORT INFORMATION
  Report Type: Spontaneous
  Country: NL (occurrence: NL)
  Receive Date: 20201012
  Receipt Date: 20201012
  Transmission Date: 20210114
  Serious: Yes (Hospitalization)
  Sender: FDA-Public Use
  Company Number: NL-TEVA-2020-NL-1836439

PATIENT
  Sex: Female

DRUGS (1)
  1. DULOXETINE CAPSULE MSR 30MG / BRAND NAME NOT SPECIFIED [Suspect]
     Active Substance: DULOXETINE
     Indication: NEUROPATHY PERIPHERAL
     Dosage: 30 MILLIGRAM DAILY;
     Dates: start: 20200818, end: 20200819

REACTIONS (1)
  - Acute coronary syndrome [Recovered/Resolved]
